FAERS Safety Report 13540666 (Version 1)
Quarter: 2017Q2

REPORT INFORMATION
  Report Type: Spontaneous
  Country: US (occurrence: US)
  Receive Date: 20170512
  Receipt Date: 20170512
  Transmission Date: 20170830
  Serious: No
  Sender: FDA-Public Use
  Company Number: US-AMGEN-USASP2017070015

PATIENT
  Age: 83 Year
  Sex: Female

DRUGS (2)
  1. ENBREL [Suspect]
     Active Substance: ETANERCEPT
     Indication: RHEUMATOID ARTHRITIS
     Dosage: UNK
     Route: 065
  2. ENBREL [Suspect]
     Active Substance: ETANERCEPT
     Indication: POLYMYALGIA RHEUMATICA

REACTIONS (8)
  - Gastrointestinal disorder [Unknown]
  - Injection site bruising [Unknown]
  - Eyelid disorder [Not Recovered/Not Resolved]
  - Eyelid oedema [Unknown]
  - Malaise [Unknown]
  - Ocular hyperaemia [Unknown]
  - Fatigue [Unknown]
  - Diarrhoea [Unknown]
